FAERS Safety Report 7001781-3 (Version None)
Quarter: 2010Q3

REPORT INFORMATION
  Report Type: 
  Country: None (occurrence: None)
  Receive Date: 20100920
  Receipt Date: 20070816
  Transmission Date: 20110219
  Serious: Yes (Other)
  Sender: FDA-Public Use
  Company Number: US-ASTRAZENECA-2006UW12293

PATIENT
  Age: 16421 Day
  Sex: Male
  Weight: 113.9 kg

DRUGS (7)
  1. SEROQUEL [Suspect]
     Indication: BIPOLAR DISORDER
     Dosage: 100-300 MG
     Route: 048
     Dates: start: 20051025, end: 20061116
  2. SEROQUEL [Suspect]
     Dosage: 100-400 MG
     Route: 048
     Dates: start: 20061208
  3. ZYPREXA [Concomitant]
     Dates: start: 19980801, end: 20010301
  4. GEODON [Concomitant]
     Dosage: 80-240 MG
     Dates: start: 20061116, end: 20061208
  5. TRILEPTAL [Concomitant]
     Dosage: 600-1800 MG
     Dates: start: 20061116
  6. ZOCOR [Concomitant]
     Dosage: 10-20 MG
     Dates: start: 20051121
  7. LISINOPRIL [Concomitant]
     Dates: start: 20060405

REACTIONS (3)
  - DIABETES MELLITUS [None]
  - HYPERGLYCAEMIA [None]
  - TYPE 2 DIABETES MELLITUS [None]
